FAERS Safety Report 19674705 (Version 1)
Quarter: 2021Q3

REPORT INFORMATION
  Report Type: Report from Study
  Country: US (occurrence: US)
  Receive Date: 20210809
  Receipt Date: 20210809
  Transmission Date: 20211014
  Serious: Yes (Other)
  Sender: FDA-Public Use
  Company Number: US-BAYER-2021-188610

PATIENT
  Sex: Male

DRUGS (2)
  1. ASPIRIN 325 MG [Suspect]
     Active Substance: ASPIRIN
     Dosage: UNK
  2. LOW MOLECULAR WEIGHT HEPARIN [Interacting]
     Active Substance: UNSPECIFIED INGREDIENT

REACTIONS (2)
  - Labelled drug-drug interaction medication error [None]
  - Catheter site haematoma [None]
